FAERS Safety Report 6165777-6 (Version None)
Quarter: 2009Q2

REPORT INFORMATION
  Report Type: 
  Country: None (occurrence: None)
  Receive Date: 20090423
  Receipt Date: 20090416
  Transmission Date: 20091009
  Serious: Yes (Other)
  Sender: FDA-Public Use
  Company Number: US-JNJCH-2009010909

PATIENT
  Sex: Female

DRUGS (1)
  1. ZYRTEC-D 12 HOUR [Suspect]
     Indication: DRUG USE FOR UNKNOWN INDICATION
     Dosage: TEXT:UNSPECIFIED
     Route: 048

REACTIONS (3)
  - ABDOMINAL PAIN UPPER [None]
  - HYPOAESTHESIA [None]
  - HYPOAESTHESIA FACIAL [None]
